FAERS Safety Report 22016189 (Version 2)
Quarter: 2023Q4

REPORT INFORMATION
  Report Type: Spontaneous
  Country: US (occurrence: US)
  Receive Date: 20230221
  Receipt Date: 20231009
  Transmission Date: 20240109
  Serious: Yes (Other)
  Sender: FDA-Public Use
  Company Number: US-PFIZER INC-202300070725

PATIENT
  Age: 25 Year
  Sex: Male

DRUGS (4)
  1. METHYLPREDNISOLONE ACETATE [Suspect]
     Active Substance: METHYLPREDNISOLONE ACETATE
     Dosage: 20 MG (PARASPINAL INJECTIONS)
     Route: 008
     Dates: end: 198703
  2. METHYLPREDNISOLONE ACETATE [Suspect]
     Active Substance: METHYLPREDNISOLONE ACETATE
     Dosage: 16 MG (PARASPINAL INJECTIONS)
     Route: 008
     Dates: end: 198703
  3. METHYLPREDNISOLONE ACETATE [Suspect]
     Active Substance: METHYLPREDNISOLONE ACETATE
     Dosage: 30 MG (PARASPINAL INJECTIONS)
     Route: 008
     Dates: end: 198703
  4. METHYLPREDNISOLONE ACETATE [Suspect]
     Active Substance: METHYLPREDNISOLONE ACETATE
     Dosage: 60 MG (PARASPINAL INJECTIONS)
     Route: 008
     Dates: end: 198703

REACTIONS (3)
  - Cushing^s syndrome [Not Recovered/Not Resolved]
  - Hypothalamic pituitary adrenal axis suppression [Recovered/Resolved]
  - Off label use [Unknown]

NARRATIVE: CASE EVENT DATE: 19870301
